FAERS Safety Report 15344037 (Version 1)
Quarter: 2018Q4

REPORT INFORMATION
  Report Type: Spontaneous
  Country: IT (occurrence: IT)
  Receive Date: 20180903
  Receipt Date: 20180903
  Transmission Date: 20190204
  Serious: Yes (Other)
  Sender: FDA-Public Use
  Company Number: IT-TEVA-2018-IT-950217

PATIENT
  Sex: Male

DRUGS (2)
  1. VENLAFAXIN A TEVA [Suspect]
     Active Substance: VENLAFAXINE HYDROCHLORIDE
     Indication: ANXIETY
     Dosage: FROM 10 DAYS
     Route: 065
  2. VENLAFAXIN A TEVA [Suspect]
     Active Substance: VENLAFAXINE HYDROCHLORIDE
     Indication: DEPRESSION

REACTIONS (4)
  - Arrhythmia [Unknown]
  - Nausea [Recovering/Resolving]
  - Adverse event [Recovering/Resolving]
  - Tachyarrhythmia [Unknown]
